FAERS Safety Report 19494122 (Version 1)
Quarter: 2021Q3

REPORT INFORMATION
  Report Type: Spontaneous
  Country: US (occurrence: US)
  Receive Date: 20210706
  Receipt Date: 20210706
  Transmission Date: 20211014
  Serious: No
  Sender: FDA-Public Use
  Company Number: US-TEVA-2021-US-1930286

PATIENT
  Sex: Male

DRUGS (2)
  1. AUSTEDO [Suspect]
     Active Substance: DEUTETRABENAZINE
     Dosage: EARLIER SHE WAS TAKING 57MG (6MG + 9MG +12MG, TWICE A DAY)
     Route: 065
  2. AUSTEDO [Suspect]
     Active Substance: DEUTETRABENAZINE
     Indication: TARDIVE DYSKINESIA
     Dosage: 18MG (12MG + 6MG) IN MORNING AND 18 MG IN THE EVENING
     Route: 065

REACTIONS (3)
  - Drug ineffective [Unknown]
  - Palpitations [Unknown]
  - Chronic cheek biting [Unknown]
